FAERS Safety Report 8472863-4 (Version None)
Quarter: 2012Q2

REPORT INFORMATION
  Report Type: 
  Country: None (occurrence: None)
  Receive Date: 20120627
  Receipt Date: 20120618
  Transmission Date: 20120825
  Serious: Yes (Hospitalization)
  Sender: FDA-Public Use
  Company Number: JP-JNJFOC-20120611556

PATIENT
  Age: 88 Year
  Sex: Female

DRUGS (6)
  1. RISPERDAL [Suspect]
     Indication: DELUSION
     Route: 048
     Dates: start: 20080104, end: 20080110
  2. ADENOSINE [Concomitant]
     Indication: CEREBRAL CIRCULATORY FAILURE
     Route: 048
     Dates: start: 20080104, end: 20080110
  3. NIVADIL [Concomitant]
     Indication: HYPERTENSION
     Route: 048
     Dates: start: 20080104, end: 20080110
  4. GASMOTIN [Concomitant]
     Indication: GASTROINTESTINAL HYPOMOTILITY
     Route: 048
     Dates: start: 20080104, end: 20080623
  5. CANDESARTAN CILEXETIL [Concomitant]
     Indication: HYPERTENSION
     Route: 048
     Dates: start: 20080104, end: 20080623
  6. ETHYL ICOSAPENTATE [Concomitant]
     Indication: PROPHYLAXIS
     Route: 048
     Dates: start: 20080104, end: 20080110

REACTIONS (1)
  - FEMORAL NECK FRACTURE [None]
